FAERS Safety Report 18524295 (Version 2)
Quarter: 2021Q1

REPORT INFORMATION
  Report Type: Spontaneous
  Country: US (occurrence: US)
  Receive Date: 20201119
  Receipt Date: 20210128
  Transmission Date: 20210419
  Serious: Yes (Other)
  Sender: FDA-Public Use
  Company Number: US-TEVA-2020-US-1848960

PATIENT
  Age: 59 Year
  Sex: Male

DRUGS (1)
  1. OLMESARTAN [Suspect]
     Active Substance: OLMESARTAN
     Indication: HYPERTENSION
     Route: 065

REACTIONS (4)
  - Malabsorption [Recovered/Resolved]
  - Portal tract inflammation [Recovered/Resolved]
  - Sprue-like enteropathy [Recovered/Resolved]
  - Liver injury [Recovered/Resolved]
